FAERS Safety Report 13470666 (Version 1)
Quarter: 2017Q2

REPORT INFORMATION
  Report Type: Spontaneous
  Country: US (occurrence: US)
  Receive Date: 20170424
  Receipt Date: 20170424
  Transmission Date: 20170830
  Serious: No
  Sender: FDA-Public Use
  Company Number: US-009507513-1703USA013387

PATIENT
  Sex: Female

DRUGS (1)
  1. DIPROLENE [Suspect]
     Active Substance: BETAMETHASONE DIPROPIONATE
     Indication: DERMATITIS
     Dosage: STRENGTH:0.05%, 15G
     Dates: start: 2016

REACTIONS (2)
  - Dermatitis [Unknown]
  - Off label use [Unknown]

NARRATIVE: CASE EVENT DATE: 2016
